FAERS Safety Report 16721306 (Version 1)
Quarter: 2019Q3

REPORT INFORMATION
  Report Type: Spontaneous
  Country: US (occurrence: US)
  Receive Date: 20190820
  Receipt Date: 20190820
  Transmission Date: 20191005
  Serious: Yes (Hospitalization)
  Sender: FDA-Public Use
  Company Number: US-PFIZER INC-2019354888

PATIENT
  Age: 62 Year
  Sex: Male
  Weight: 76.2 kg

DRUGS (7)
  1. KEFLEX [Concomitant]
     Active Substance: CEPHALEXIN
     Indication: LOCALISED INFECTION
     Dosage: 500 MG, 2X/DAY [TWO OR THREE A DAY BY MOUTH    ]
     Route: 048
     Dates: start: 201906, end: 201906
  2. METOPROLOL. [Concomitant]
     Active Substance: METOPROLOL
     Indication: ARTERIAL DISORDER
     Dosage: 50 MG, DAILY
     Route: 048
  3. LISINOPRIL [LISINOPRIL DIHYDRATE] [Concomitant]
     Indication: BLOOD PRESSURE MEASUREMENT
     Dosage: 10 MG, DAILY [10MG TABLET, BY MOUTH DAILY   ]
     Route: 048
  4. KEFLEX [Concomitant]
     Active Substance: CEPHALEXIN
     Dosage: 500 MG, 3X/DAY [TWO OR THREE A DAY BY MOUTH    ]
     Route: 048
     Dates: start: 201906, end: 201906
  5. ZYVOX [Suspect]
     Active Substance: LINEZOLID
     Indication: OSTEOMYELITIS
     Dosage: 600 MG, 2X/DAY
     Route: 048
     Dates: end: 20190701
  6. ATORVASTATIN [Concomitant]
     Active Substance: ATORVASTATIN
     Indication: BLOOD CHOLESTEROL
     Dosage: UNK UNK, DAILY [1/2 TABLET BY MOUTH DAILY]
     Route: 048
  7. LANTUS XR [Concomitant]
     Active Substance: INSULIN GLARGINE
     Indication: DIABETES MELLITUS
     Dosage: 30 MG, 1X/DAY [A DAY AT BEDTIME]

REACTIONS (3)
  - Drug ineffective for unapproved indication [Not Recovered/Not Resolved]
  - Platelet count decreased [Unknown]
  - Off label use [Unknown]
